FAERS Safety Report 6593723-X (Version None)
Quarter: 2010Q1

REPORT INFORMATION
  Report Type: 
  Country: None (occurrence: None)
  Receive Date: 20100222
  Receipt Date: 20091218
  Transmission Date: 20100710
  Serious: No
  Sender: FDA-Public Use
  Company Number: US-BRISTOL-MYERS SQUIBB COMPANY-14901425

PATIENT
  Age: 61 Year
  Sex: Female
  Weight: 52 kg

DRUGS (2)
  1. ORENCIA [Suspect]
     Dosage: NO OF INFUSION-7 LAST ONE ON 17-DEC-2009
     Dates: end: 20091217
  2. VITAMINS [Concomitant]

REACTIONS (1)
  - RASH ERYTHEMATOUS [None]
